FAERS Safety Report 8922827 (Version 1)
Quarter: 2012Q4

REPORT INFORMATION
  Report Type: Spontaneous
  Country: US (occurrence: None)
  Receive Date: 20121115
  Receipt Date: 20121115
  Transmission Date: 20130627
  Serious: Yes (Other)
  Sender: FDA-Public Use
  Company Number: None

PATIENT
  Sex: Male
  Weight: 28.58 kg

DRUGS (1)
  1. SEPTOCAINE [Suspect]
     Indication: DENTAL OPERATION
     Dates: start: 20120217, end: 20120217

REACTIONS (2)
  - Lip swelling [None]
  - Oedema mouth [None]
